FAERS Safety Report 7811939-9 (Version None)
Quarter: 2011Q4

REPORT INFORMATION
  Report Type: 
  Country: None (occurrence: None)
  Receive Date: 20111013
  Receipt Date: 20111009
  Transmission Date: 20120403
  Serious: Yes (Other)
  Sender: FDA-Public Use
  Company Number: PHHY2011IL89340

PATIENT

DRUGS (1)
  1. ZOLEDRONOC ACID [Suspect]
     Dosage: 5 MG/ 100 ML
     Route: 042

REACTIONS (1)
  - OSTEONECROSIS OF JAW [None]
